FAERS Safety Report 21423191 (Version 1)
Quarter: 2022Q4

REPORT INFORMATION
  Report Type: Spontaneous
  Country: US (occurrence: None)
  Receive Date: 20221006
  Receipt Date: 20221006
  Transmission Date: 20230113
  Serious: No
  Sender: FDA-Public Use
  Company Number: None

PATIENT
  Sex: Male

DRUGS (1)
  1. DORZOLAMIDE HYDROCHLORIDE AND TIMOLOL MALEATE [Suspect]
     Active Substance: DORZOLAMIDE HYDROCHLORIDE\TIMOLOL MALEATE
     Indication: Open angle glaucoma
     Dosage: OTHER QUANTITY : 0.2%-0.5%;?FREQUENCY : TWICE A DAY;?
     Route: 047

REACTIONS (2)
  - Erythema [None]
  - Pruritus [None]
